FAERS Safety Report 19092227 (Version 2)
Quarter: 2021Q3

REPORT INFORMATION
  Report Type: Report from Study
  Country: US (occurrence: US)
  Receive Date: 20210405
  Receipt Date: 20210928
  Transmission Date: 20211014
  Serious: Yes (Other)
  Sender: FDA-Public Use
  Company Number: US-EMD SERONO-9228696

PATIENT
  Sex: Female

DRUGS (1)
  1. REBIF [Suspect]
     Active Substance: INTERFERON BETA-1A
     Indication: MULTIPLE SCLEROSIS
     Route: 058
     Dates: start: 20201118, end: 202107

REACTIONS (4)
  - Aspartate aminotransferase increased [Unknown]
  - Malaise [Unknown]
  - Condition aggravated [Unknown]
  - Alanine aminotransferase increased [Unknown]
